FAERS Safety Report 7399745-3 (Version None)
Quarter: 2011Q2

REPORT INFORMATION
  Report Type: 
  Country: None (occurrence: None)
  Receive Date: 20110407
  Receipt Date: 20110210
  Transmission Date: 20111010
  Serious: Yes (Other)
  Sender: FDA-Public Use
  Company Number: US-BAYER-201035892NA

PATIENT
  Sex: Female

DRUGS (6)
  1. SEROQUEL [Concomitant]
  2. WELLBUTRIN [Concomitant]
  3. LEVOTHYROXINE SODIUM [Concomitant]
  4. XENICAL [Concomitant]
  5. YASMIN [Suspect]
     Indication: ACNE
     Route: 048
     Dates: start: 20021224, end: 20030301
  6. TETRACYCLINE [Concomitant]

REACTIONS (2)
  - GALLBLADDER DISORDER [None]
  - CHOLELITHIASIS [None]
